FAERS Safety Report 11445633 (Version 1)
Quarter: 2015Q3

REPORT INFORMATION
  Report Type: Spontaneous
  Country: US (occurrence: None)
  Receive Date: 20150901
  Receipt Date: 20150901
  Transmission Date: 20151125
  Serious: No
  Sender: FDA-Public Use
  Company Number: None

PATIENT
  Age: 74 Year
  Sex: Female

DRUGS (32)
  1. CEFTAROLINE 600MG FOREST PHARMACEUTICALS [Suspect]
     Active Substance: CEFTAROLINE
     Indication: PNEUMONIA
     Dosage: 600 MG  BID INTRAVENOUS
     Route: 042
     Dates: start: 20150817, end: 20150823
  2. ASPIRIN. [Concomitant]
     Active Substance: ASPIRIN
  3. HUMULIN R [Concomitant]
     Active Substance: INSULIN HUMAN
  4. MAG SULFATE [Concomitant]
  5. PSYLLIUM [Concomitant]
     Active Substance: PLANTAGO SEED
  6. SIROLIMUS. [Concomitant]
     Active Substance: SIROLIMUS
  7. ACETAMINOPHEN. [Concomitant]
     Active Substance: ACETAMINOPHEN
  8. HYDRALAZINE [Concomitant]
     Active Substance: HYDRALAZINE HYDROCHLORIDE
  9. DULOXETINE. [Concomitant]
     Active Substance: DULOXETINE
  10. HEPARIN [Concomitant]
     Active Substance: HEPARIN SODIUM
  11. PANTOPRAZOLE [Concomitant]
     Active Substance: PANTOPRAZOLE SODIUM
  12. DETEMIR [Concomitant]
  13. IPRATROPIUM [Concomitant]
     Active Substance: IPRATROPIUM
  14. METOPROLOL SUCCINATE. [Concomitant]
     Active Substance: METOPROLOL SUCCINATE
  15. ALBUTEROL. [Concomitant]
     Active Substance: ALBUTEROL
  16. PRAVASTATIN [Concomitant]
     Active Substance: PRAVASTATIN\PRAVASTATIN SODIUM
  17. ALPRAZOLAM. [Concomitant]
     Active Substance: ALPRAZOLAM
  18. ONDANSETRON [Concomitant]
     Active Substance: ONDANSETRON
  19. METHYLPREDNISOLONE. [Concomitant]
     Active Substance: METHYLPREDNISOLONE
  20. HYDROMORPHONE [Concomitant]
     Active Substance: HYDROMORPHONE
  21. LORAZEPAM. [Concomitant]
     Active Substance: LORAZEPAM
  22. METHADONE [Concomitant]
     Active Substance: METHADONE HYDROCHLORIDE
  23. THERA M PLUS [Concomitant]
  24. MYCOPHENYLATE [Concomitant]
  25. PREDNISONE. [Concomitant]
     Active Substance: PREDNISONE
  26. LEVOFLOXACIN. [Concomitant]
     Active Substance: LEVOFLOXACIN
  27. BOTOX [Concomitant]
     Active Substance: ONABOTULINUMTOXINA
  28. FLUTICASONE [Concomitant]
     Active Substance: FLUTICASONE\FLUTICASONE PROPIONATE
  29. SENNOSIDES-DOCUSATE SODIUM [Concomitant]
     Active Substance: DOCUSATE SODIUM\SENNOSIDES
  30. CLINDAMYCIN [Concomitant]
     Active Substance: CLINDAMYCIN\CLINDAMYCIN PHOSPHATE
  31. FUROSEMIDE. [Concomitant]
     Active Substance: FUROSEMIDE
  32. MEROPENEM. [Concomitant]
     Active Substance: MEROPENEM

REACTIONS (1)
  - Blood potassium decreased [None]

NARRATIVE: CASE EVENT DATE: 20150823
